FAERS Safety Report 7796660-8 (Version None)
Quarter: 2011Q3

REPORT INFORMATION
  Report Type: 
  Country: None (occurrence: None)
  Receive Date: 20110930
  Receipt Date: 20110914
  Transmission Date: 20111222
  Serious: Yes (Other)
  Sender: FDA-Public Use
  Company Number: M1104059

PATIENT
  Age: 54 Year
  Sex: Female

DRUGS (1)
  1. FORTICAL [Suspect]
     Indication: OSTEOPOROSIS
     Dosage: 1 IN 1 D, INTRA-NASA;
     Route: 045
     Dates: start: 20050101

REACTIONS (2)
  - HEADACHE [None]
  - PITUITARY TUMOUR [None]
